FAERS Safety Report 8521679-9 (Version None)
Quarter: 2012Q3

REPORT INFORMATION
  Report Type: 
  Country: None (occurrence: None)
  Receive Date: 20120706
  Receipt Date: 20120621
  Transmission Date: 20120928
  Serious: Yes (Other)
  Sender: FDA-Public Use
  Company Number: 2012SGN00285

PATIENT
  Age: 35 Year
  Sex: Female
  Weight: 200 kg

DRUGS (1)
  1. ADCETRIS [Suspect]
     Indication: PRODUCT USED FOR UNKNOWN INDICATION
     Dosage: 180 MG, UNK
     Dates: start: 20120608, end: 20120608

REACTIONS (7)
  - ALANINE AMINOTRANSFERASE INCREASED [None]
  - DIARRHOEA [None]
  - ASPARTATE AMINOTRANSFERASE INCREASED [None]
  - NEUROPATHY PERIPHERAL [None]
  - VOMITING [None]
  - MALAISE [None]
  - MYALGIA [None]
